FAERS Safety Report 23873782 (Version 1)
Quarter: 2024Q2

REPORT INFORMATION
  Report Type: Spontaneous
  Country: CA (occurrence: None)
  Receive Date: 20240520
  Receipt Date: 20240520
  Transmission Date: 20240716
  Serious: Yes (Other)
  Sender: FDA-Public Use
  Company Number: CA-PFIZER INC-202400108004

PATIENT
  Age: 29 Year
  Sex: Male
  Weight: 77.1 kg

DRUGS (3)
  1. METHOTREXATE [Suspect]
     Active Substance: METHOTREXATE
     Indication: Crohn^s disease
     Dates: start: 2023
  2. HULIO [Concomitant]
     Active Substance: ADALIMUMAB-FKJP
     Indication: Crohn^s disease
     Dates: start: 202401, end: 20240511
  3. FOLIC ACID [Concomitant]
     Active Substance: FOLIC ACID

REACTIONS (3)
  - Crohn^s disease [Not Recovered/Not Resolved]
  - Product use in unapproved indication [Unknown]
  - Anal fissure [Not Recovered/Not Resolved]
